FAERS Safety Report 5041563-5 (Version None)
Quarter: 2006Q2

REPORT INFORMATION
  Report Type: 
  Country: None (occurrence: None)
  Receive Date: 20060627
  Receipt Date: 20060613
  Transmission Date: 20061013
  Serious: Yes (Other)
  Sender: FDA-Public Use
  Company Number: 2006075924

PATIENT
  Age: 56 Year
  Sex: Male
  Weight: 104.3273 kg

DRUGS (11)
  1. DEPO-MEDROL [Suspect]
     Indication: NERVE BLOCK
     Dates: start: 20060602
  2. DEPO-MEDROL [Suspect]
     Indication: SPINAL DISORDER
     Dates: start: 20060602
  3. LIDOCAINE [Suspect]
     Indication: NERVE BLOCK
     Dates: start: 20060602
  4. LIDOCAINE [Suspect]
     Indication: SPINAL DISORDER
     Dates: start: 20060602
  5. CELEBREX [Suspect]
     Indication: BONE PAIN
  6. CELEBREX [Suspect]
     Indication: INFLAMMATION
  7. METOPROLOL SUCCINATE [Suspect]
     Indication: VENTRICULAR EXTRASYSTOLES
  8. GLUCOSAMINE (GLUCOSAMINE) [Suspect]
     Indication: BONE PAIN
  9. GLUCOSAMINE (GLUCOSAMINE) [Suspect]
     Indication: INFLAMMATION
  10. VITAMIN C (VITAMIN C) [Concomitant]
  11. DAILY VITAMINS (VITAMINS NOS) [Concomitant]

REACTIONS (12)
  - BALANCE DISORDER [None]
  - BRADYCARDIA [None]
  - CARDIAC ARREST [None]
  - DRUG INTERACTION [None]
  - DYSSTASIA [None]
  - INTERVERTEBRAL DISC PROTRUSION [None]
  - NAUSEA [None]
  - POST PROCEDURAL COMPLICATION [None]
  - RESPIRATORY ARREST [None]
  - SLEEP DISORDER [None]
  - VENTRICULAR EXTRASYSTOLES [None]
  - VOMITING [None]
